FAERS Safety Report 8478289-1 (Version None)
Quarter: 2012Q2

REPORT INFORMATION
  Report Type: 
  Country: None (occurrence: None)
  Receive Date: 20120615
  Receipt Date: 20120531
  Transmission Date: 20120825
  Serious: Yes (Hospitalization)
  Sender: FDA-Public Use
  Company Number: DSA_57670_2012

PATIENT
  Age: 86 Year
  Sex: Female

DRUGS (5)
  1. VASOTEC [Suspect]
     Indication: ESSENTIAL HYPERTENSION
     Dosage: 20 MG QD, ORAL
     Route: 048
     Dates: end: 20120416
  2. ACETYLCYSTEINE (ACETADOTE) [Suspect]
     Indication: PRODUCT USED FOR UNKNOWN INDICATION
     Dosage: (DF)
  3. HYDROXOCOBALAMIN [Concomitant]
  4. METOPROLOL SUCCINATE [Concomitant]
  5. PLENDIL [Concomitant]

REACTIONS (3)
  - ANGIOEDEMA [None]
  - HYPERSENSITIVITY [None]
  - DRUG HYPERSENSITIVITY [None]
